FAERS Safety Report 16186487 (Version 1)
Quarter: 2019Q2

REPORT INFORMATION
  Report Type: Spontaneous
  Country: US (occurrence: US)
  Receive Date: 20190411
  Receipt Date: 20190411
  Transmission Date: 20190711
  Serious: No
  Sender: FDA-Public Use
  Company Number: US-BAUSCH-BL-2019-009537

PATIENT
  Sex: Male
  Weight: 81.72 kg

DRUGS (2)
  1. FLUOROURACIL CREAM 5 % [Suspect]
     Active Substance: FLUOROURACIL
     Indication: SQUAMOUS CELL CARCINOMA
     Route: 061
     Dates: start: 201901, end: 20190208
  2. FLUOROURACIL CREAM 5 % [Suspect]
     Active Substance: FLUOROURACIL
     Route: 061
     Dates: start: 2019, end: 20190308

REACTIONS (4)
  - Sunburn [Not Recovered/Not Resolved]
  - Taste disorder [Not Recovered/Not Resolved]
  - Paranasal sinus hypersecretion [Not Recovered/Not Resolved]
  - Application site pain [Not Recovered/Not Resolved]

NARRATIVE: CASE EVENT DATE: 2019
